FAERS Safety Report 10756052 (Version 3)
Quarter: 2015Q2

REPORT INFORMATION
  Report Type: Report from Study
  Country: US (occurrence: US)
  Receive Date: 20150202
  Receipt Date: 20150416
  Transmission Date: 20150821
  Serious: Yes (Other)
  Sender: FDA-Public Use
  Company Number: US-SA-2014SA145780

PATIENT
  Age: 72 Year
  Sex: Male
  Weight: 86.18 kg

DRUGS (24)
  1. TIZANIDINE (TIZANIDINE) [Concomitant]
     Active Substance: TIZANIDINE
     Indication: MUSCLE SPASTICITY
  2. VESICARE [Concomitant]
     Active Substance: SOLIFENACIN SUCCINATE
  3. VITAMIN C [Concomitant]
     Active Substance: ASCORBIC ACID
  4. VINPOCETINE [Concomitant]
     Active Substance: VINPOCETINE
  5. VITAMIN D [Concomitant]
     Active Substance: CHOLECALCIFEROL
  6. AMPYRA [Concomitant]
     Active Substance: DALFAMPRIDINE
     Indication: MULTIPLE SCLEROSIS
     Dates: start: 20130101
  7. CALCIUM [Concomitant]
     Active Substance: CALCIUM
  8. BENEFIBER [Concomitant]
     Active Substance: STARCH, WHEAT
     Dosage: DOSE:1 TEASPOON(S)
  9. ASPIRIN. [Concomitant]
     Active Substance: ASPIRIN
  10. MIRALAX [Concomitant]
     Active Substance: POLYETHYLENE GLYCOL 3350
     Dosage: LESS THAN 17G
  11. TYLENOL [Concomitant]
     Active Substance: ACETAMINOPHEN
     Dosage: 8-HOUR (2)
  12. TIMOLOL [Concomitant]
     Active Substance: TIMOLOL
  13. VITAMIN B12 [Concomitant]
     Active Substance: CYANOCOBALAMIN
  14. FLOMAX [Concomitant]
     Active Substance: TAMSULOSIN HYDROCHLORIDE
  15. FISH OIL [Concomitant]
     Active Substance: FISH OIL
  16. AUBAGIO [Suspect]
     Active Substance: TERIFLUNOMIDE
     Indication: MULTIPLE SCLEROSIS
     Route: 048
     Dates: start: 201410
  17. BACLOFEN. [Concomitant]
     Active Substance: BACLOFEN
     Indication: MUSCLE SPASTICITY
  18. SERTRALINE [Concomitant]
     Active Substance: SERTRALINE HYDROCHLORIDE
  19. CRESTOR [Concomitant]
     Active Substance: ROSUVASTATIN CALCIUM
  20. AMPYRA [Concomitant]
     Active Substance: DALFAMPRIDINE
  21. AUBAGIO [Suspect]
     Active Substance: TERIFLUNOMIDE
     Indication: MULTIPLE SCLEROSIS
     Route: 048
  22. OMEPRAZOLE. [Concomitant]
     Active Substance: OMEPRAZOLE
  23. ZETIA [Concomitant]
     Active Substance: EZETIMIBE
  24. CENTRUM SILVER [Concomitant]
     Active Substance: VITAMINS

REACTIONS (6)
  - Asthenia [Unknown]
  - Muscular weakness [Unknown]
  - Drug dose omission [Unknown]
  - Back pain [Unknown]
  - Movement disorder [Unknown]
  - Gait disturbance [Unknown]
